FAERS Safety Report 5062836-6 (Version None)
Quarter: 2006Q3

REPORT INFORMATION
  Report Type: 
  Country: None (occurrence: None)
  Receive Date: 20060724
  Receipt Date: 20060710
  Transmission Date: 20061208
  Serious: Yes (Hospitalization)
  Sender: FDA-Public Use
  Company Number: 2006083085

PATIENT
  Sex: Female

DRUGS (4)
  1. SILDENAFIL (PAH)  (SILDENAFIL) [Suspect]
     Indication: PULMONARY HYPERTENSION
     Dosage: 20 MG, 3 IN 1 D
  2. TRACLEER [Concomitant]
  3. ALL OTHER THERAPEUTIC PRODUCTS [Concomitant]
  4. BOSENTAN [Concomitant]

REACTIONS (5)
  - DIARRHOEA [None]
  - GENERAL PHYSICAL HEALTH DETERIORATION [None]
  - HEADACHE [None]
  - NAUSEA [None]
  - VOMITING [None]
